FAERS Safety Report 5389542-2 (Version None)
Quarter: 2007Q3

REPORT INFORMATION
  Report Type: 
  Country: None (occurrence: None)
  Receive Date: 20070717
  Receipt Date: 20070706
  Transmission Date: 20080115
  Serious: Yes (Congenital Anomaly)
  Sender: FDA-Public Use
  Company Number: FR-PFIZER INC-2007037035

PATIENT
  Sex: Male
  Weight: 11.6 kg

DRUGS (1)
  1. DOSTINEX [Suspect]

REACTIONS (4)
  - CRYPTORCHISM [None]
  - DRUG EXPOSURE DURING PREGNANCY [None]
  - LEARNING DISORDER [None]
  - PENIS DISORDER [None]
